FAERS Safety Report 6500014-1 (Version None)
Quarter: 2009Q4

REPORT INFORMATION
  Report Type: 
  Country: None (occurrence: None)
  Receive Date: 20091216
  Receipt Date: 20091211
  Transmission Date: 20100525
  Serious: Yes (Other)
  Sender: FDA-Public Use
  Company Number: BR-BAYER-200916560LA

PATIENT
  Age: 49 Year
  Sex: Female

DRUGS (7)
  1. BETAFERON [Suspect]
     Indication: SECONDARY PROGRESSIVE MULTIPLE SCLEROSIS
     Dosage: TOTAL DAILY DOSE: 8 MIU
     Route: 058
     Dates: start: 20041201
  2. GABAPENTIN [Concomitant]
     Indication: PARAESTHESIA
     Dosage: 1 TABLET EVERY NIGHT
     Route: 048
     Dates: start: 20080701
  3. FLUOXETINE [Concomitant]
     Indication: TEARFULNESS
     Dosage: 1 TABLET EVERY MORNING
     Route: 048
  4. PARACETAMOL W/CODEIN [Concomitant]
     Indication: MUSCULOSKELETAL STIFFNESS
     Route: 048
     Dates: start: 20091001
  5. MELOXICAM [Concomitant]
     Indication: MUSCULOSKELETAL STIFFNESS
     Dosage: TOTAL DAILY DOSE: 1 DF
     Route: 048
     Dates: start: 20091001
  6. RANITIDINE [Concomitant]
     Indication: ABDOMINAL DISCOMFORT
     Dosage: TOTAL DAILY DOSE: 1 DF
     Route: 048
     Dates: start: 20091001
  7. HYDROCHLOROTHIAZIDE [Concomitant]
     Indication: FLUID RETENTION
     Dosage: TOTAL DAILY DOSE: 25 MG
     Route: 048

REACTIONS (15)
  - ABDOMINAL DISTENSION [None]
  - DECREASED APPETITE [None]
  - FLUID RETENTION [None]
  - HEPATIC STEATOSIS [None]
  - HEPATOMEGALY [None]
  - INFLUENZA [None]
  - INJECTION SITE PRURITUS [None]
  - INJECTION SITE SCAB [None]
  - INJECTION SITE ULCER [None]
  - MUSCLE SPASMS [None]
  - MUSCULOSKELETAL DISCOMFORT [None]
  - OEDEMA PERIPHERAL [None]
  - PAIN IN EXTREMITY [None]
  - SNEEZING [None]
  - SWELLING FACE [None]
